FAERS Safety Report 18192992 (Version 3)
Quarter: 2021Q4

REPORT INFORMATION
  Report Type: Spontaneous
  Country: ES (occurrence: ES)
  Receive Date: 20200825
  Receipt Date: 20211001
  Transmission Date: 20220303
  Serious: Yes (Life-Threatening, Hospitalization, Other)
  Sender: FDA-Public Use
  Company Number: ES-UCBSA-2020018585

PATIENT
  Age: 8 Year
  Sex: Male

DRUGS (9)
  1. LEVETIRACETAM [Suspect]
     Active Substance: LEVETIRACETAM
     Indication: Epilepsy
     Dosage: UNK(UNKNOWN DOSE)
     Route: 048
  2. LEVETIRACETAM [Suspect]
     Active Substance: LEVETIRACETAM
     Indication: Febrile infection
  3. LEVETIRACETAM [Suspect]
     Active Substance: LEVETIRACETAM
     Indication: Viral infection
  4. ACETAMINOPHEN [Suspect]
     Active Substance: ACETAMINOPHEN
     Indication: Epilepsy
     Dosage: UNK(UNKNOWN DOSE)
     Route: 065
  5. ACETAMINOPHEN [Suspect]
     Active Substance: ACETAMINOPHEN
     Indication: Febrile infection
  6. ACETAMINOPHEN [Suspect]
     Active Substance: ACETAMINOPHEN
     Indication: Viral infection
  7. NOREPINEPHRINE [Concomitant]
     Active Substance: NOREPINEPHRINE
     Indication: Product used for unknown indication
     Dosage: UNK(UP TO 0.12 MICROG/KG/MIN)
  8. DOPAMINE [Concomitant]
     Active Substance: DOPAMINE HYDROCHLORIDE
     Indication: Product used for unknown indication
     Dosage: UNK(UP TO 12 MICROG/KG/MIN)
  9. DIAZEPAM [Concomitant]
     Active Substance: DIAZEPAM
     Indication: Epilepsy
     Dosage: UNK(UNKNOWN DOSE)
     Route: 065

REACTIONS (10)
  - Toxic epidermal necrolysis [Recovered/Resolved]
  - Hypotension [Unknown]
  - Haemoglobin decreased [Unknown]
  - Melaena [Unknown]
  - Epistaxis [Unknown]
  - Acute kidney injury [Unknown]
  - Keratitis [Recovering/Resolving]
  - Ulcerative keratitis [Recovering/Resolving]
  - Stomatitis haemorrhagic [Recovering/Resolving]
  - Mucosal erosion [Recovering/Resolving]
